FAERS Safety Report 7439175-9 (Version None)
Quarter: 2011Q2

REPORT INFORMATION
  Report Type: 
  Country: None (occurrence: None)
  Receive Date: 20110427
  Receipt Date: 20110418
  Transmission Date: 20111010
  Serious: Yes (Death, Other)
  Sender: FDA-Public Use
  Company Number: IE-JNJFOC-20110310032

PATIENT
  Sex: Female

DRUGS (8)
  1. RISPERIDONE [Suspect]
     Indication: DEMENTIA
     Route: 065
  2. AUGMENTIN [Concomitant]
     Route: 065
  3. ZOPICLONE [Concomitant]
     Route: 065
  4. RAMIPRIL [Concomitant]
     Route: 065
  5. RISPERIDONE [Suspect]
     Indication: ABNORMAL BEHAVIOUR
     Route: 065
  6. AKINETON [Concomitant]
     Route: 065
  7. TRAZODONE HCL [Concomitant]
     Route: 065
  8. XANAX [Concomitant]
     Route: 065

REACTIONS (2)
  - NEUROLEPTIC MALIGNANT SYNDROME [None]
  - DEATH [None]
